FAERS Safety Report 15065494 (Version 1)
Quarter: 2018Q3

REPORT INFORMATION
  Report Type: Spontaneous
  Country: US (occurrence: US)
  Receive Date: 20180626
  Receipt Date: 20180626
  Transmission Date: 20181010
  Serious: No
  Sender: FDA-Public Use
  Company Number: US-GLENMARK PHARMACEUTICALS-2018GMK033999

PATIENT

DRUGS (1)
  1. FLUOCINONIDE CREAM USP, 0.1 % [Suspect]
     Active Substance: FLUOCINONIDE
     Indication: DRY SKIN
     Dosage: UNK
     Route: 061

REACTIONS (2)
  - Product use issue [Unknown]
  - No adverse event [Unknown]
